FAERS Safety Report 15294174 (Version 1)
Quarter: 2018Q3

REPORT INFORMATION
  Report Type: Spontaneous
  Country: US (occurrence: US)
  Receive Date: 20180807
  Receipt Date: 20180807
  Transmission Date: 20181010
  Serious: Yes (Other)
  Sender: FDA-Public Use
  Company Number: None

PATIENT
  Age: 37 Year
  Sex: Female
  Weight: 53.1 kg

DRUGS (5)
  1. LAMICTAL [Concomitant]
     Active Substance: LAMOTRIGINE
  2. MYDAYIS [Concomitant]
     Active Substance: AMPHETAMINE ASPARTATE\AMPHETAMINE SULFATE\DEXTROAMPHETAMINE SACCHARATE\DEXTROAMPHETAMINE SULFATE
  3. OMEPRAZOLE DELAYED?RELEASE CAPSULES 20MG MYLAN [Suspect]
     Active Substance: OMEPRAZOLE
     Indication: DUODENAL ULCER
     Dosage: ?          QUANTITY:14 CAPSULE(S);?
     Route: 048
     Dates: start: 20180613, end: 20180617
  4. TRINTELLIX [Suspect]
     Active Substance: VORTIOXETINE HYDROBROMIDE
     Indication: MAJOR DEPRESSION
     Dosage: ?          QUANTITY:30 TABLET(S);?
     Route: 048
  5. CARAFATE [Concomitant]
     Active Substance: SUCRALFATE

REACTIONS (5)
  - Nausea [None]
  - Drug interaction [None]
  - Duodenal ulcer [None]
  - Suicidal ideation [None]
  - Vomiting [None]

NARRATIVE: CASE EVENT DATE: 20180617
